FAERS Safety Report 7892804-8 (Version None)
Quarter: 2011Q4

REPORT INFORMATION
  Report Type: 
  Country: None (occurrence: None)
  Receive Date: 20111104
  Receipt Date: 20111025
  Transmission Date: 20120403
  Serious: Yes (Hospitalization, Other)
  Sender: FDA-Public Use
  Company Number: US-BAYER-2011-054977

PATIENT
  Age: 31 Year
  Sex: Female

DRUGS (15)
  1. YAZ [Suspect]
     Indication: ACNE
     Dosage: UNK
     Dates: start: 20070801, end: 20090901
  2. YASMIN [Suspect]
     Indication: PREMENSTRUAL SYNDROME
  3. DROSPIRENONE AND ETHINYL ESTRADIOL [Suspect]
     Indication: CONTRACEPTION
     Dosage: UNK
     Dates: start: 20060101, end: 20060301
  4. IMITREX [Concomitant]
     Dosage: UNK
     Dates: start: 20050101
  5. YAZ [Suspect]
     Indication: PREMENSTRUAL SYNDROME
  6. ZOMIG [Concomitant]
     Dosage: UNK
     Dates: start: 20050101
  7. YASMIN [Suspect]
     Indication: ACNE
     Dosage: UNK
     Dates: start: 20070801, end: 20090901
  8. DROSPIRENONE AND ETHINYL ESTRADIOL [Suspect]
     Indication: ACNE
     Dosage: UNK
     Dates: start: 20070801, end: 20090901
  9. OXYCONTIN [Concomitant]
     Dosage: UNK
     Dates: start: 20050101, end: 20100401
  10. MS CONTIN [Concomitant]
     Dosage: UNK
     Dates: start: 20050101, end: 20100401
  11. YASMIN [Suspect]
     Indication: CONTRACEPTION
     Dosage: UNK
     Dates: start: 20060101, end: 20060301
  12. DROSPIRENONE AND ETHINYL ESTRADIOL [Suspect]
     Indication: PREMENSTRUAL SYNDROME
  13. LIPITOR [Concomitant]
     Dosage: UNK
     Dates: start: 20090501, end: 20091001
  14. YAZ [Suspect]
     Indication: CONTRACEPTION
     Dosage: UNK
     Dates: start: 20060101, end: 20060301
  15. DILAUDID [Concomitant]
     Dosage: UNK
     Dates: start: 20090801, end: 20091001

REACTIONS (10)
  - MYOCARDIAL INFARCTION [None]
  - ANXIETY [None]
  - GALLBLADDER DISORDER [None]
  - PAIN [None]
  - FEAR [None]
  - ANHEDONIA [None]
  - DEEP VEIN THROMBOSIS [None]
  - INJURY [None]
  - PULMONARY EMBOLISM [None]
  - CEREBROVASCULAR ACCIDENT [None]
